FAERS Safety Report 6681072-0 (Version None)
Quarter: 2010Q2

REPORT INFORMATION
  Report Type: 
  Country: None (occurrence: None)
  Receive Date: 20100414
  Receipt Date: 20100407
  Transmission Date: 20101027
  Serious: Yes (Death)
  Sender: FDA-Public Use
  Company Number: US-CELGENEUS-163-21880-10032499

PATIENT
  Sex: Female

DRUGS (2)
  1. REVLIMID [Suspect]
     Route: 048
     Dates: start: 20100115, end: 20100301
  2. REVLIMID [Suspect]
     Route: 048
     Dates: start: 20090801

REACTIONS (2)
  - DISEASE PROGRESSION [None]
  - FAILURE TO THRIVE [None]
